FAERS Safety Report 16707175 (Version 1)
Quarter: 2019Q3

REPORT INFORMATION
  Report Type: Spontaneous
  Country: US (occurrence: US)
  Receive Date: 20190628
  Receipt Date: 20190628
  Transmission Date: 20191004
  Serious: Yes (Other)
  Sender: FDA-Public Use
  Company Number: None

PATIENT

DRUGS (1)
  1. ESCITALOPRAM GENERIC FOR LEXAPRO [Suspect]
     Active Substance: ESCITALOPRAM OXALATE
     Indication: ANXIETY
     Dosage: 1 PILL PER DAY MOUTY?
     Route: 048
     Dates: start: 20181023, end: 20181027

REACTIONS (5)
  - Tension [None]
  - Restlessness [None]
  - Agitation [None]
  - Fear [None]
  - Panic reaction [None]

NARRATIVE: CASE EVENT DATE: 20181127
